APPROVED DRUG PRODUCT: MIDAZOLAM IN 0.9% SODIUM CHLORIDE
Active Ingredient: MIDAZOLAM
Strength: 100MG/100ML (1MG/ML)
Dosage Form/Route: SOLUTION;INTRAVENOUS
Application: N211844 | Product #002 | TE Code: AP
Applicant: INFORLIFE SA
Approved: Mar 22, 2021 | RLD: Yes | RS: Yes | Type: RX

PATENTS:
Patent 10966990 | Expires: Jun 20, 2038